FAERS Safety Report 12040571 (Version 4)
Quarter: 2016Q4

REPORT INFORMATION
  Report Type: Spontaneous
  Country: DK (occurrence: DK)
  Receive Date: 20160208
  Receipt Date: 20161125
  Transmission Date: 20170206
  Serious: Yes (Death, Life-Threatening, Hospitalization, Disabling)
  Sender: FDA-Public Use
  Company Number: DK-IPSEN BIOPHARMACEUTICALS, INC.-2016-00827

PATIENT
  Age: 68 Year
  Sex: Female
  Weight: 67.5 kg

DRUGS (2)
  1. CORODIL COMP [Concomitant]
     Active Substance: ENALAPRIL MALEATE\HYDROCHLOROTHIAZIDE
     Indication: HYPERTENSION
     Dates: end: 20151231
  2. IPSTYL AUTOGEL 90MG [Suspect]
     Active Substance: LANREOTIDE ACETATE
     Indication: NEUROENDOCRINE BREAST TUMOUR
     Dosage: 90 MG
     Route: 058
     Dates: start: 20151211, end: 20151211

REACTIONS (11)
  - Acute hepatic failure [Fatal]
  - Decreased appetite [Unknown]
  - Blood potassium increased [Unknown]
  - Hepatic function abnormal [Fatal]
  - Endotracheal intubation [Recovered/Resolved]
  - Asthenia [Not Recovered/Not Resolved]
  - Hepatitis B [Fatal]
  - Subacute hepatic failure [Not Recovered/Not Resolved]
  - Jaundice [Not Recovered/Not Resolved]
  - Hepatic enzyme increased [Not Recovered/Not Resolved]
  - Fatigue [Unknown]

NARRATIVE: CASE EVENT DATE: 201512
